FAERS Safety Report 5309668-9 (Version None)
Quarter: 2007Q2

REPORT INFORMATION
  Report Type: 
  Country: None (occurrence: None)
  Receive Date: 20070427
  Receipt Date: 20060927
  Transmission Date: 20071010
  Serious: No
  Sender: FDA-Public Use
  Company Number: US-GLAXOSMITHKLINE-A0621675A

PATIENT
  Age: 43 Year
  Sex: Male

DRUGS (2)
  1. DEXEDRINE [Suspect]
     Indication: ATTENTION DEFICIT/HYPERACTIVITY DISORDER
     Dosage: 5MG VARIABLE DOSE
     Route: 048
  2. DEXEDRINE [Suspect]
     Dosage: 5MG VARIABLE DOSE
     Route: 048

REACTIONS (6)
  - DRUG INEFFECTIVE [None]
  - FEELING ABNORMAL [None]
  - MENTAL IMPAIRMENT [None]
  - OVERDOSE [None]
  - SLEEP DISORDER [None]
  - WEIGHT INCREASED [None]
